FAERS Safety Report 8598869-2 (Version None)
Quarter: 2012Q3

REPORT INFORMATION
  Report Type: 
  Country: None (occurrence: None)
  Receive Date: 20120816
  Receipt Date: 20120809
  Transmission Date: 20120928
  Serious: Yes (Hospitalization)
  Sender: FDA-Public Use
  Company Number: GB-GLAXOSMITHKLINE-B0822646A

PATIENT
  Sex: Male
  Weight: 62.4 kg

DRUGS (9)
  1. METOCLOPRAMIDE [Concomitant]
     Dosage: 10MG AS REQUIRED
     Route: 048
     Dates: start: 20120531
  2. BENDAMUSTINE HYDROCHLORIDE [Suspect]
     Indication: CHRONIC LYMPHOCYTIC LEUKAEMIA
     Route: 042
     Dates: start: 20120531
  3. PREDNISOLONE [Suspect]
     Dosage: 20MG AS REQUIRED
     Route: 048
     Dates: start: 20120531
  4. CHLORPHENIRAMINE MALEATE [Concomitant]
     Route: 042
     Dates: start: 20120531
  5. ALLOPURINOL [Concomitant]
     Route: 048
     Dates: start: 20120531
  6. ACYCLOVIR [Concomitant]
  7. ARZERRA [Suspect]
     Indication: CHRONIC LYMPHOCYTIC LEUKAEMIA
     Route: 042
     Dates: start: 20120531
  8. ACETAMINOPHEN [Concomitant]
     Dosage: 1G AS REQUIRED
     Route: 048
     Dates: start: 20120531
  9. NEUPOGEN [Concomitant]

REACTIONS (1)
  - FEBRILE NEUTROPENIA [None]
